FAERS Safety Report 13030999 (Version 1)
Quarter: 2016Q4

REPORT INFORMATION
  Report Type: Spontaneous
  Country: FR (occurrence: FR)
  Receive Date: 20161215
  Receipt Date: 20161215
  Transmission Date: 20170207
  Serious: Yes (Hospitalization)
  Sender: FDA-Public Use
  Company Number: FR-LUNDBECK-DKLU2023988

PATIENT
  Age: 83 Year
  Sex: Male

DRUGS (2)
  1. URBANYL [Suspect]
     Active Substance: CLOBAZAM
     Indication: EPILEPSY
     Dosage: DOSE, FORM, FREQUENCY AND LOT; UNKNOWN
     Route: 048
     Dates: start: 20161128
  2. KEPPRA [Suspect]
     Active Substance: LEVETIRACETAM
     Indication: EPILEPSY
     Dosage: DOSE, FORM, FREQUENCY AND LOT; UNKNOWN
     Route: 048
     Dates: start: 20161128, end: 20161201

REACTIONS (1)
  - Pancytopenia [Unknown]

NARRATIVE: CASE EVENT DATE: 20161201
